FAERS Safety Report 9424646 (Version 14)
Quarter: 2014Q3

REPORT INFORMATION
  Report Type: Report from Study
  Country: CA (occurrence: CA)
  Receive Date: 20130729
  Receipt Date: 20140908
  Transmission Date: 20150326
  Serious: Yes (Life-Threatening, Hospitalization, Other)
  Sender: FDA-Public Use
  Company Number: CA-AMGEN-CANCT2013052085

PATIENT
  Age: 72 Year
  Sex: Male

DRUGS (27)
  1. FOLIC ACID. [Concomitant]
     Active Substance: FOLIC ACID
     Dosage: 5 MG, UNK
     Route: 048
     Dates: start: 2009, end: 20130715
  2. NAPROXEN. [Concomitant]
     Active Substance: NAPROXEN
     Indication: RHEUMATOID ARTHRITIS
     Dosage: 220 MG, QD
     Route: 048
     Dates: start: 20111202, end: 20111223
  3. AZATHIOPRINE. [Concomitant]
     Active Substance: AZATHIOPRINE
     Dosage: 50 MG, QD
     Route: 048
     Dates: start: 20130826
  4. WILD SALMON AND FISH OILS OMEGA 3 COMPLEX [Concomitant]
     Dosage: UNK
  5. METHOTREXATE [Suspect]
     Active Substance: METHOTREXATE
     Dosage: 20 MG, UNK
     Route: 048
     Dates: start: 20130822, end: 20130826
  6. RAMIPRIL. [Concomitant]
     Active Substance: RAMIPRIL
     Indication: HYPERTENSION
     Dosage: 15 MG, DAILY
     Route: 048
     Dates: start: 2005, end: 20130703
  7. TINACTIN [Concomitant]
     Active Substance: TOLNAFTATE
     Indication: FUNGAL INFECTION
     Dosage: UNK
     Route: 061
     Dates: start: 20120203, end: 20120303
  8. METHOTRIMEPRAZINE                  /00038601/ [Concomitant]
     Indication: VASCULITIS
     Dosage: 12.5 MG, PRN
     Route: 042
     Dates: start: 20130830
  9. METHOTREXATE [Suspect]
     Active Substance: METHOTREXATE
     Indication: RHEUMATOID ARTHRITIS
     Dosage: 22.5 MG, UNK
     Route: 048
     Dates: start: 2009, end: 20130223
  10. NORVASC [Concomitant]
     Active Substance: AMLODIPINE BESYLATE
     Indication: HYPERTENSION
     Dosage: 5 MG, DAILY
     Route: 048
     Dates: start: 2005, end: 20130703
  11. VITAMIN D3 [Concomitant]
     Active Substance: CHOLECALCIFEROL
     Dosage: UNK UNK, QD
     Route: 048
     Dates: start: 2009, end: 20130715
  12. KEFLEX [Concomitant]
     Active Substance: CEPHALEXIN
     Dosage: 500 MG, QID
     Route: 048
     Dates: start: 20130529, end: 20130605
  13. HEPARIN [Concomitant]
     Active Substance: HEPARIN SODIUM
     Dosage: 5000 UNIT, BID
     Route: 058
     Dates: start: 20130830, end: 20130914
  14. FENTANYL                           /00174602/ [Concomitant]
     Active Substance: FENTANYL
     Dosage: 75 MG, UNK
     Dates: start: 20130905, end: 20130905
  15. METHOTREXATE [Suspect]
     Active Substance: METHOTREXATE
     Dosage: 15 MG, UNK
     Route: 048
     Dates: start: 20130224, end: 20130703
  16. TYLENOL EXTRA STRENGTH [Concomitant]
     Active Substance: ACETAMINOPHEN
     Indication: RHEUMATOID ARTHRITIS
     Dosage: 500 MG, TID
     Route: 048
     Dates: start: 2007, end: 20111217
  17. NIZORAL [Concomitant]
     Active Substance: KETOCONAZOLE
     Indication: FUNGAL INFECTION
     Dosage: UNK UNK, BID
     Route: 061
     Dates: start: 20111215, end: 20120202
  18. MIDAZOLAM HYDROCHLORIDE. [Concomitant]
     Active Substance: MIDAZOLAM HYDROCHLORIDE
     Dosage: 6 MG, UNK
     Dates: start: 20130905, end: 20130905
  19. ASPIRIN. [Concomitant]
     Active Substance: ASPIRIN
     Dosage: 81 MG, QD
     Route: 048
     Dates: start: 2005
  20. LIPITOR [Concomitant]
     Active Substance: ATORVASTATIN CALCIUM
     Indication: HYPERLIPIDAEMIA
     Dosage: UNK UNK, QD
     Route: 048
     Dates: start: 2005, end: 20130715
  21. ETANERCEPT [Suspect]
     Active Substance: ETANERCEPT
     Indication: RHEUMATOID ARTHRITIS
     Dosage: 50 MG, QWK
     Route: 058
     Dates: start: 20130606, end: 20130626
  22. METHOTREXATE [Suspect]
     Active Substance: METHOTREXATE
     Dosage: 12.5 MG, UNK
     Route: 048
     Dates: start: 20130815, end: 20130821
  23. TYLENOL EXTRA STRENGTH [Concomitant]
     Active Substance: ACETAMINOPHEN
     Dosage: 650 MG, PRN
     Route: 048
     Dates: start: 20111218, end: 20120630
  24. NAPROXEN. [Concomitant]
     Active Substance: NAPROXEN
     Dosage: 220 MG, UNK
     Route: 048
     Dates: start: 20111224, end: 20120630
  25. KENALOG [Concomitant]
     Active Substance: TRIAMCINOLONE ACETONIDE
     Indication: RHEUMATOID ARTHRITIS
     Dosage: 0.25 SINGLE DOSE
     Route: 014
     Dates: start: 20120203, end: 20120203
  26. AMIODARONE [Concomitant]
     Active Substance: AMIODARONE
     Dosage: 300 MG, UNK
     Route: 042
     Dates: start: 20130905, end: 20130905
  27. FLUMAZENIL. [Concomitant]
     Active Substance: FLUMAZENIL
     Dosage: 0.3 MG, UNK
     Route: 042
     Dates: start: 20130905, end: 20130905

REACTIONS (13)
  - Atrial fibrillation [Not Recovered/Not Resolved]
  - Creatinine renal clearance increased [Recovered/Resolved]
  - Coagulopathy [Not Recovered/Not Resolved]
  - Encephalopathy [Not Recovered/Not Resolved]
  - Respiratory failure [Unknown]
  - Paraproteinaemia [Unknown]
  - Hypotension [Not Recovered/Not Resolved]
  - Renal impairment [Recovered/Resolved]
  - Pneumonia [Unknown]
  - Hypersensitivity vasculitis [Recovered/Resolved]
  - Septic shock [Unknown]
  - Hepatic enzyme increased [Not Recovered/Not Resolved]
  - Renal failure acute [Unknown]

NARRATIVE: CASE EVENT DATE: 20130213
